FAERS Safety Report 9217697 (Version 2)
Quarter: 2013Q2

REPORT INFORMATION
  Report Type: Report from Study
  Country: US (occurrence: US)
  Receive Date: 20130408
  Receipt Date: 20130408
  Transmission Date: 20140414
  Serious: Yes (Other)
  Sender: FDA-Public Use
  Company Number: US-TEVA-245988USA

PATIENT
  Sex: Male

DRUGS (2)
  1. CLOZAPINE TABLETS [Suspect]
     Indication: SCHIZOPHRENIA
     Dosage: 850 MILLIGRAM DAILY;
     Route: 048
  2. RISPERIDONE [Concomitant]

REACTIONS (10)
  - Convulsion [Unknown]
  - Hydrocephalus [Unknown]
  - Cyst [None]
  - Ventricular hypertrophy [None]
  - Drug ineffective [None]
  - Dysphagia [None]
  - Weight decreased [None]
  - Decreased appetite [None]
  - Cardiomyopathy [None]
  - Platelet count decreased [None]
